FAERS Safety Report 14431598 (Version 1)
Quarter: 2018Q1

REPORT INFORMATION
  Report Type: Spontaneous
  Country: US (occurrence: US)
  Receive Date: 20180124
  Receipt Date: 20180124
  Transmission Date: 20180509
  Serious: No
  Sender: FDA-Public Use
  Company Number: US-TEVA-2018-US-850256

PATIENT
  Age: 60 Year
  Sex: Male

DRUGS (4)
  1. UREA. [Concomitant]
     Active Substance: UREA
     Indication: HYPERKERATOSIS
     Route: 061
  2. HALOBETASOL [Concomitant]
     Active Substance: HALOBETASOL PROPIONATE
     Indication: HYPERKERATOSIS
     Route: 061
  3. ACITRETIN. [Suspect]
     Active Substance: ACITRETIN
     Indication: HYPERKERATOSIS
     Route: 065
  4. ACITRETIN. [Suspect]
     Active Substance: ACITRETIN
     Indication: HYPERKERATOSIS
     Route: 065

REACTIONS (1)
  - Dry skin [Recovered/Resolved]
